FAERS Safety Report 23959969 (Version 1)
Quarter: 2024Q2

REPORT INFORMATION
  Report Type: Spontaneous
  Country: TR (occurrence: TR)
  Receive Date: 20240611
  Receipt Date: 20240611
  Transmission Date: 20240716
  Serious: Yes (Hospitalization, Other)
  Sender: FDA-Public Use
  Company Number: TR-RISINGPHARMA-TR-2024RISLIT00184

PATIENT
  Age: 17 Year
  Sex: Female

DRUGS (1)
  1. VERAPAMIL HYDROCHLORIDE [Suspect]
     Active Substance: VERAPAMIL HYDROCHLORIDE
     Indication: Product used for unknown indication
     Dosage: 17 TABLETS
     Route: 048

REACTIONS (7)
  - Suicide attempt [Unknown]
  - Nausea [Unknown]
  - Hypotension [Recovered/Resolved]
  - Acidosis [Unknown]
  - Toxicity to various agents [Unknown]
  - Off label use [Unknown]
  - Intentional overdose [Unknown]
